FAERS Safety Report 9062568 (Version 2)
Quarter: 2013Q2

REPORT INFORMATION
  Report Type: Report from Study
  Country: DE (occurrence: DE)
  Receive Date: 20130128
  Receipt Date: 20130626
  Transmission Date: 20140414
  Serious: Yes (Hospitalization)
  Sender: FDA-Public Use
  Company Number: DE-SANOFI-AVENTIS-2013SA006540

PATIENT
  Age: 68 Year
  Sex: Female
  Weight: 63 kg

DRUGS (2)
  1. DOCETAXEL [Suspect]
     Indication: BREAST CANCER
     Route: 041
     Dates: start: 20070411, end: 20070411
  2. FORTECORTIN [Concomitant]
     Indication: BREAST CANCER
     Route: 042
     Dates: start: 20070411, end: 20070411

REACTIONS (4)
  - Encephalopathy [Recovered/Resolved]
  - Faecal incontinence [Recovered/Resolved]
  - Atypical pneumonia [Recovered/Resolved]
  - General physical health deterioration [Recovered/Resolved]
